FAERS Safety Report 6903440-1 (Version None)
Quarter: 2010Q3

REPORT INFORMATION
  Report Type: 
  Country: None (occurrence: None)
  Receive Date: 20100803
  Receipt Date: 20080930
  Transmission Date: 20110219
  Serious: No
  Sender: FDA-Public Use
  Company Number: US-PFIZER INC-2008050415

PATIENT
  Sex: Male

DRUGS (2)
  1. LYRICA [Suspect]
     Indication: TRIGEMINAL NEURALGIA
     Route: 048
     Dates: start: 20070315
  2. LORTAB [Concomitant]

REACTIONS (2)
  - DRUG DEPENDENCE [None]
  - INSOMNIA [None]
